FAERS Safety Report 5135287-3 (Version None)
Quarter: 2006Q4

REPORT INFORMATION
  Report Type: 
  Country: None (occurrence: None)
  Receive Date: 20061024
  Receipt Date: 20061024
  Transmission Date: 20070319
  Serious: Yes (Other)
  Sender: FDA-Public Use
  Company Number: None

PATIENT
  Age: 57 Year
  Sex: Male
  Weight: 65.7716 kg

DRUGS (1)
  1. FOSAMAX PLUS D [Suspect]
     Indication: OSTEOPENIA
     Dosage: 1 TABLET   ONCE EACH WEEK   PO
     Route: 048
     Dates: start: 20051202, end: 20061015

REACTIONS (1)
  - TOOTH FRACTURE [None]
